FAERS Safety Report 7549751-0 (Version None)
Quarter: 2011Q2

REPORT INFORMATION
  Report Type: 
  Country: None (occurrence: None)
  Receive Date: 20110615
  Receipt Date: 20061003
  Transmission Date: 20111010
  Serious: Yes (Other)
  Sender: FDA-Public Use
  Company Number: PHFR2005GB00498

PATIENT
  Sex: Female

DRUGS (1)
  1. CLOZAPINE [Suspect]
     Indication: SCHIZOPHRENIA
     Route: 048
     Dates: start: 19970210

REACTIONS (7)
  - MEAN CELL HAEMOGLOBIN [None]
  - RED CELL DISTRIBUTION WIDTH INCREASED [None]
  - THALASSAEMIA [None]
  - MEAN CELL VOLUME DECREASED [None]
  - RED BLOOD CELL COUNT INCREASED [None]
  - LYMPHOCYTE COUNT INCREASED [None]
  - PLATELET COUNT INCREASED [None]
